FAERS Safety Report 19126685 (Version 1)
Quarter: 2021Q2

REPORT INFORMATION
  Report Type: Spontaneous
  Country: US (occurrence: US)
  Receive Date: 20210413
  Receipt Date: 20210413
  Transmission Date: 20210717
  Serious: No
  Sender: FDA-Public Use
  Company Number: US-TAKEDA-2021TUS022950

PATIENT
  Age: 48 Year
  Sex: Female
  Weight: 154 kg

DRUGS (7)
  1. DIPHENHYDRAMINE. [Concomitant]
     Active Substance: DIPHENHYDRAMINE
     Dosage: 25 MILLIGRAM
     Route: 048
  2. EPINEPHRINE. [Concomitant]
     Active Substance: EPINEPHRINE
     Dosage: 1 MILLIGRAM/KILOGRAM
     Route: 065
  3. GAMMAGARD LIQUID [Suspect]
     Active Substance: HUMAN IMMUNOGLOBULIN G
     Dosage: 80 GRAM, FOR 2 DAYS EVERY 2 WEEKS
     Route: 065
  4. GAMMAGARD LIQUID [Suspect]
     Active Substance: HUMAN IMMUNOGLOBULIN G
     Indication: PRODUCT USED FOR UNKNOWN INDICATION
     Dosage: 80 GRAM, FOR 2 DAYS EVERY 2 WEEKS
     Route: 065
  5. BENADRYL [ACRIVASTINE] [Concomitant]
     Active Substance: ACRIVASTINE
     Dosage: UNK
     Route: 065
  6. ACETAMINOPHEN. [Concomitant]
     Active Substance: ACETAMINOPHEN
     Dosage: 650 MILLIGRAM
     Route: 048
  7. SODIUM CHLORIDE. [Concomitant]
     Active Substance: SODIUM CHLORIDE
     Dosage: 500 MILLILITER
     Route: 065

REACTIONS (5)
  - Chest pain [Recovered/Resolved]
  - Granuloma [Unknown]
  - Dyspnoea [Recovered/Resolved]
  - Morphoea [Unknown]
  - Incorrect drug administration rate [Recovered/Resolved]

NARRATIVE: CASE EVENT DATE: 20210405
